FAERS Safety Report 20322141 (Version 2)
Quarter: 2022Q1

REPORT INFORMATION
  Report Type: Spontaneous
  Country: US (occurrence: None)
  Receive Date: 20220111
  Receipt Date: 20220125
  Transmission Date: 20220423
  Serious: Yes (Death)
  Sender: FDA-Public Use
  Company Number: US-ROCHE-2995108

PATIENT
  Age: 42 Year
  Sex: Female
  Weight: 125.3 kg

DRUGS (1)
  1. ACTEMRA [Suspect]
     Active Substance: TOCILIZUMAB
     Indication: COVID-19
     Dosage: ONGOING -YES
     Route: 042
     Dates: start: 20211213

REACTIONS (2)
  - Death [Fatal]
  - Off label use [Fatal]
